FAERS Safety Report 13515346 (Version 1)
Quarter: 2017Q2

REPORT INFORMATION
  Report Type: Spontaneous
  Country: JP (occurrence: JP)
  Receive Date: 20170504
  Receipt Date: 20170504
  Transmission Date: 20170830
  Serious: Yes (Death)
  Sender: FDA-Public Use
  Company Number: JP-BAYER-2017-077710

PATIENT
  Age: 73 Year
  Sex: Male

DRUGS (3)
  1. NEXAVAR [Suspect]
     Active Substance: SORAFENIB
     Indication: RENAL CELL CARCINOMA
  2. NEXAVAR [Suspect]
     Active Substance: SORAFENIB
     Indication: RENAL CELL CARCINOMA RECURRENT
     Dosage: 800 MG, QD
     Route: 048
     Dates: start: 201302, end: 201409
  3. PAZOPANIB [Concomitant]
     Active Substance: PAZOPANIB
     Indication: METASTATIC RENAL CELL CARCINOMA
     Dosage: 800 MG, QD

REACTIONS (5)
  - Palmar-plantar erythrodysaesthesia syndrome [None]
  - Death [Fatal]
  - Hypothyroidism [None]
  - Hypertension [None]
  - Anaemia [None]
